FAERS Safety Report 10034215 (Version 1)
Quarter: 2014Q1

REPORT INFORMATION
  Report Type: Spontaneous
  Country: US (occurrence: None)
  Receive Date: 20140205
  Receipt Date: 20140205
  Transmission Date: 20141002
  Serious: Yes (Other)
  Sender: FDA-Public Use
  Company Number: 2010S1000291

PATIENT
  Age: 62 Year
  Sex: Male

DRUGS (2)
  1. FLEET PHOSPHO-SODA ORAL SALINE LAXATIVE, GINGER-LEMON FLAVOR [Suspect]
     Indication: SIGMOIDOSCOPY
     Route: 048
     Dates: start: 20070619
  2. VIPER [Concomitant]

REACTIONS (1)
  - Renal failure chronic [None]
